FAERS Safety Report 24932838 (Version 2)
Quarter: 2025Q1

REPORT INFORMATION
  Report Type: Report from Study
  Country: GB (occurrence: GB)
  Receive Date: 20250205
  Receipt Date: 20250211
  Transmission Date: 20250409
  Serious: Yes (Hospitalization)
  Sender: ABBVIE
  Company Number: GB-ABBVIE-6069700

PATIENT
  Age: 62 Year
  Sex: Female

DRUGS (1)
  1. FOSCARBIDOPA\FOSLEVODOPA [Suspect]
     Active Substance: FOSCARBIDOPA\FOSLEVODOPA
     Indication: Parkinson^s disease
     Route: 058
     Dates: start: 20241024

REACTIONS (3)
  - Cellulitis [Unknown]
  - Catheter site infection [Unknown]
  - Catheter site injury [Unknown]

NARRATIVE: CASE EVENT DATE: 20240101
